FAERS Safety Report 10255876 (Version 1)
Quarter: 2014Q2

REPORT INFORMATION
  Report Type: Spontaneous
  Country: US (occurrence: None)
  Receive Date: 20140530
  Receipt Date: 20140530
  Transmission Date: 20141212
  Serious: Yes (Other)
  Sender: FDA-Public Use
  Company Number: 2013037984

PATIENT
  Age: 9 Year
  Sex: Female
  Weight: 38.56 kg

DRUGS (8)
  1. HIZENTRA (IMMUNOGLOBULIN HUMAN NORMAL) [Suspect]
     Indication: HYPOGAMMAGLOBULINAEMIA
     Route: 058
  2. DIPHENHYDRAMINE [Concomitant]
  3. LIDOCAINE/PRILOCAINE (EMLA/00675501/) [Concomitant]
  4. EPIPEN (EPINEPHRINE) [Concomitant]
  5. SINGULAIR (MONTELUKAST) [Concomitant]
  6. PV KIDS GUMMY BEAR TAB (DAILY MULTIVITAMIN) [Concomitant]
  7. ADVAIR (SERETIDE/01420901/) [Concomitant]
  8. PROAIR (SALBUTAMOL SULFATE) [Concomitant]

REACTIONS (1)
  - Pyrexia [None]
